FAERS Safety Report 5661936-7 (Version None)
Quarter: 2008Q1

REPORT INFORMATION
  Report Type: 
  Country: None (occurrence: None)
  Receive Date: 20080312
  Receipt Date: 20080303
  Transmission Date: 20080703
  Serious: Yes (Life-Threatening, Hospitalization, Disabling)
  Sender: FDA-Public Use
  Company Number: MA-KINGPHARMUSA00001-K200800270

PATIENT

DRUGS (1)
  1. BICILLIN L-A [Suspect]
     Indication: PHARYNGITIS STREPTOCOCCAL
     Route: 013

REACTIONS (7)
  - ACUTE PULMONARY OEDEMA [None]
  - HAEMOPTYSIS [None]
  - HYPOXIA [None]
  - INCORRECT ROUTE OF DRUG ADMINISTRATION [None]
  - PAIN [None]
  - PARAPLEGIA [None]
  - RESPIRATORY DISTRESS [None]
